FAERS Safety Report 6080134-9 (Version None)
Quarter: 2009Q1

REPORT INFORMATION
  Report Type: 
  Country: None (occurrence: None)
  Receive Date: 20090217
  Receipt Date: 20090210
  Transmission Date: 20090719
  Serious: Yes (Hospitalization)
  Sender: FDA-Public Use
  Company Number: US-ASTRAZENECA-2009UW03897

PATIENT
  Age: 21053 Day
  Sex: Female
  Weight: 118.4 kg

DRUGS (14)
  1. FASLODEX [Suspect]
     Indication: BREAST CANCER METASTATIC
     Route: 030
     Dates: start: 20080617, end: 20080617
  2. FASLODEX [Suspect]
     Route: 030
     Dates: start: 20080617, end: 20090205
  3. CAPECITABINE [Suspect]
     Indication: BREAST CANCER METASTATIC
     Dates: start: 20080617, end: 20080812
  4. CAPECITABINE [Suspect]
     Dates: start: 20081208, end: 20090129
  5. ALISKIREN FUMARATE [Concomitant]
     Route: 048
     Dates: start: 20070701
  6. ZETIA [Concomitant]
     Route: 048
     Dates: start: 20070401
  7. DYAZIDE [Concomitant]
     Route: 048
     Dates: start: 20060501
  8. MULTI-VITAMINS [Concomitant]
     Dates: start: 20020101
  9. ZOFRAN [Concomitant]
     Route: 048
     Dates: start: 20081104
  10. LOTRISONE [Concomitant]
     Route: 048
     Dates: start: 20050401
  11. PHENERGAN [Concomitant]
  12. VITAMIN E [Concomitant]
  13. ASPIRIN [Concomitant]
  14. TYLENOL [Concomitant]
     Indication: ARTHRITIS
     Route: 048
     Dates: start: 20080802

REACTIONS (4)
  - DEHYDRATION [None]
  - ENTERITIS [None]
  - HYPOTENSION [None]
  - RENAL FAILURE ACUTE [None]
